FAERS Safety Report 9844661 (Version 1)
Quarter: 2014Q1

REPORT INFORMATION
  Report Type: Spontaneous
  Country: KR (occurrence: None)
  Receive Date: 20140122
  Receipt Date: 20140122
  Transmission Date: 20141002
  Serious: Yes (Other)
  Sender: FDA-Public Use
  Company Number: FK201400179

PATIENT
  Age: 64 Year
  Sex: Male

DRUGS (2)
  1. OXALIPLATIN [Suspect]
     Indication: COLORECTAL CANCER
  2. SEROTONIN ( 5-HT3) ANTAGONIST ( SEROTONIN (5HT3) ANTAGONISTS) [Concomitant]

REACTIONS (1)
  - Anaphylactic reaction [None]
